FAERS Safety Report 11824633 (Version 1)
Quarter: 2015Q4

REPORT INFORMATION
  Report Type: Spontaneous
  Country: ES (occurrence: ES)
  Receive Date: 20151210
  Receipt Date: 20151210
  Transmission Date: 20160305
  Serious: Yes (Hospitalization)
  Sender: FDA-Public Use
  Company Number: ES-SA-2015SA200190

PATIENT
  Sex: Female
  Weight: 68 kg

DRUGS (2)
  1. ALEMTUZUMAB [Suspect]
     Active Substance: ALEMTUZUMAB
     Indication: MULTIPLE SCLEROSIS
     Route: 042
     Dates: start: 20150323, end: 20150327
  2. ALEMTUZUMAB [Suspect]
     Active Substance: ALEMTUZUMAB
     Indication: RELAPSING-REMITTING MULTIPLE SCLEROSIS
     Route: 042
     Dates: start: 20150323, end: 20150327

REACTIONS (2)
  - Adenoiditis [Recovered/Resolved]
  - Lymphadenitis [Recovered/Resolved]

NARRATIVE: CASE EVENT DATE: 20151112
